FAERS Safety Report 24156417 (Version 2)
Quarter: 2024Q3

REPORT INFORMATION
  Report Type: Spontaneous
  Country: US (occurrence: US)
  Receive Date: 20240731
  Receipt Date: 20240815
  Transmission Date: 20241017
  Serious: Yes (Other)
  Sender: PFIZER
  Company Number: US-PFIZER INC-202400225934

PATIENT
  Age: 77 Year
  Sex: Male
  Weight: 58.97 kg

DRUGS (10)
  1. XELJANZ XR [Suspect]
     Active Substance: TOFACITINIB CITRATE
     Indication: Rheumatoid arthritis
     Dosage: 11MG TABLET ONCE A DAY BY MOUTH
     Route: 048
     Dates: start: 2022
  2. FOSAMAX [Concomitant]
     Active Substance: ALENDRONATE SODIUM
     Dosage: 70 MG ONCE A WEEK
  3. OZEMPIC [Concomitant]
     Active Substance: SEMAGLUTIDE
     Dosage: ONCE PER WEEK  .50 MG
  4. ASPIRIN [Concomitant]
     Active Substance: ASPIRIN
     Dosage: 81 MG (ONCE A DAY) 8AM
  5. ELIQUIS [Concomitant]
     Active Substance: APIXABAN
     Dosage: EVERY 12 HRS TWICE A DAY 8AM AND 8 PM
  6. JARDIANCE [Concomitant]
     Active Substance: EMPAGLIFLOZIN
     Dosage: (ONCE A DAY) 8AM
  7. COREG [Concomitant]
     Active Substance: CARVEDILOL
     Dosage: 6.125 MG 1 PILL 8AM AND 1 6PM
  8. METFORMIN HYDROCHLORIDE [Concomitant]
     Active Substance: METFORMIN HYDROCHLORIDE
     Dosage: 2 TABLETS MORNING + 1 TABLET 6PM WITH WATER
  9. ATORVASTATIN CALCIUM [Concomitant]
     Active Substance: ATORVASTATIN CALCIUM
     Dosage: BEFORE BED
  10. ZYRTEC-D ALLERGY AND CONGESTION [Concomitant]
     Active Substance: CETIRIZINE HYDROCHLORIDE\PSEUDOEPHEDRINE HYDROCHLORIDE
     Indication: Hypersensitivity
     Dosage: UNK, AS NEEDED

REACTIONS (3)
  - Ejection fraction decreased [Recovered/Resolved]
  - Dizziness [Recovered/Resolved]
  - Balance disorder [Recovered/Resolved]

NARRATIVE: CASE EVENT DATE: 20240101
